FAERS Safety Report 7469519-3 (Version None)
Quarter: 2011Q2

REPORT INFORMATION
  Report Type: 
  Country: None (occurrence: None)
  Receive Date: 20110510
  Receipt Date: 20110426
  Transmission Date: 20111010
  Serious: Yes (Hospitalization)
  Sender: FDA-Public Use
  Company Number: JP-JNJFOC-20110400581

PATIENT
  Sex: Female
  Weight: 47 kg

DRUGS (9)
  1. REMICADE [Suspect]
     Route: 042
  2. REMICADE [Suspect]
     Route: 042
  3. SULFASALAZINE [Concomitant]
  4. REMICADE [Suspect]
     Route: 042
  5. REMICADE [Suspect]
     Route: 042
  6. REMICADE [Suspect]
     Indication: CROHN'S DISEASE
     Route: 042
  7. BIOFERMIN [Concomitant]
     Indication: CROHN'S DISEASE
     Route: 048
  8. REMICADE [Suspect]
     Route: 042
  9. PENTASA [Concomitant]
     Indication: CROHN'S DISEASE
     Dosage: 100 MG, 300 MG DAILY
     Route: 048

REACTIONS (4)
  - ORAL HERPES [None]
  - DRUG EXPOSURE DURING PREGNANCY [None]
  - CROHN'S DISEASE [None]
  - DECREASED APPETITE [None]
